FAERS Safety Report 26063174 (Version 2)
Quarter: 2025Q4

REPORT INFORMATION
  Report Type: Spontaneous
  Country: US (occurrence: US)
  Receive Date: 20251119
  Receipt Date: 20251125
  Transmission Date: 20260119
  Serious: No
  Sender: ABBVIE
  Company Number: US-ABBVIE-6553748

PATIENT
  Age: 71 Year
  Sex: Female
  Weight: 89.357 kg

DRUGS (1)
  1. RESTASIS [Suspect]
     Active Substance: CYCLOSPORINE
     Indication: Dry eye
     Dosage: 1 DROP IN BOTH EYES, MORNING AND NIGHT
     Route: 047
     Dates: start: 202511, end: 202511

REACTIONS (1)
  - Eye pruritus [Recovered/Resolved]

NARRATIVE: CASE EVENT DATE: 20251101
